FAERS Safety Report 10137748 (Version 1)
Quarter: 2014Q2

REPORT INFORMATION
  Report Type: Spontaneous
  Country: US (occurrence: None)
  Receive Date: 20140428
  Receipt Date: 20140428
  Transmission Date: 20141212
  Serious: Yes (Other)
  Sender: FDA-Public Use
  Company Number: None

PATIENT
  Age: 26 Year
  Sex: Female

DRUGS (1)
  1. BUPROPION 150 MG [Suspect]
     Indication: DEPRESSION
     Dosage: 1 TABLET, TWICE DAILY, TAKEN BY MOUTH
     Route: 048
     Dates: start: 20140315, end: 20140322

REACTIONS (4)
  - Headache [None]
  - Dizziness [None]
  - Blood pressure increased [None]
  - Product substitution issue [None]
